FAERS Safety Report 6757016-X (Version None)
Quarter: 2010Q2

REPORT INFORMATION
  Report Type: 
  Country: None (occurrence: None)
  Receive Date: 20100604
  Receipt Date: 20100525
  Transmission Date: 20101027
  Serious: Yes (Hospitalization)
  Sender: FDA-Public Use
  Company Number: DE-WATSON-2010-06098

PATIENT

DRUGS (4)
  1. ALENDRONATE SODIUM [Suspect]
     Indication: OSTEOPOROSIS
     Dosage: 70 MG, 1/WEEK
     Route: 048
     Dates: start: 20070101
  2. EXELON [Suspect]
     Indication: DEMENTIA
     Dosage: 9 MG, DAILY
     Route: 062
     Dates: start: 20090901, end: 20100305
  3. CALCIUM D3                         /00944201/ [Suspect]
     Indication: OSTEOPOROSIS
     Dosage: 1 DF, UNK - 600MG CA/400 IU D3
     Route: 048
     Dates: start: 20070101, end: 20100305
  4. RAMIPRIL [Concomitant]
     Indication: HYPERTENSION
     Dosage: 10 MG, DAILY
     Route: 048

REACTIONS (6)
  - DEHYDRATION [None]
  - DIZZINESS [None]
  - HYPERCALCAEMIA [None]
  - NAUSEA [None]
  - RENAL FAILURE ACUTE [None]
  - VOMITING [None]
